FAERS Safety Report 7593360-4 (Version None)
Quarter: 2011Q3

REPORT INFORMATION
  Report Type: 
  Country: None (occurrence: None)
  Receive Date: 20110706
  Receipt Date: 20110628
  Transmission Date: 20111222
  Serious: Yes (Hospitalization)
  Sender: FDA-Public Use
  Company Number: AT-TEVA-289113ISR

PATIENT
  Age: 42 Year
  Sex: Male
  Weight: 73 kg

DRUGS (8)
  1. IRINOTECAN HYDROCHLORIDE [Suspect]
     Indication: COLORECTAL CANCER
     Dosage: 12.8571 MG/M2;
     Route: 042
     Dates: start: 20110316, end: 20110427
  2. FLUOROURACIL [Suspect]
     Route: 040
     Dates: start: 20110316
  3. BEVACIZUMAB [Suspect]
     Indication: COLORECTAL CANCER
     Route: 042
     Dates: start: 20110316, end: 20110427
  4. POTASSIUM CHLORIDE [Concomitant]
     Dates: start: 20110511, end: 20110516
  5. ALPRAZOLAM [Concomitant]
     Dates: start: 20110510, end: 20110516
  6. PANTOPRAZOLE [Concomitant]
     Dates: start: 20110307
  7. FLUOROURACIL [Suspect]
     Indication: COLORECTAL CANCER
     Route: 040
     Dates: start: 20110316
  8. LEUCOVORIN CALCIUM [Suspect]
     Indication: COLORECTAL CANCER
     Route: 042
     Dates: start: 20110316, end: 20110427

REACTIONS (1)
  - PNEUMONIA PRIMARY ATYPICAL [None]
